FAERS Safety Report 20597396 (Version 1)
Quarter: 2022Q1

REPORT INFORMATION
  Report Type: Spontaneous
  Country: GB (occurrence: GB)
  Receive Date: 20220315
  Receipt Date: 20220315
  Transmission Date: 20220423
  Serious: Yes (Other)
  Sender: FDA-Public Use
  Company Number: None

PATIENT
  Age: 66 Year
  Sex: Female
  Weight: 64 kg

DRUGS (9)
  1. NITROFURANTOIN [Suspect]
     Active Substance: NITROFURANTOIN
     Indication: Product used for unknown indication
     Dosage: 100 MILLIGRAM, BID (FOR 7 DAYS)
     Dates: start: 20220303
  2. AMITRIPTYLINE HYDROCHLORIDE [Concomitant]
     Active Substance: AMITRIPTYLINE HYDROCHLORIDE
     Dosage: 1 DOSAGE FORM, PM (AT NIGHT)
     Dates: start: 20200320
  3. AMOXICILLIN [Concomitant]
     Active Substance: AMOXICILLIN
     Dosage: 1 DOSAGE FORM, TID
     Dates: start: 20220307
  4. ATORVASTATIN [Concomitant]
     Active Substance: ATORVASTATIN
     Dosage: 1 DOSAGE FORM, PM (TO BE TAKEN AT NIGHT)
     Dates: start: 20200320
  5. DEXTROSE [Concomitant]
     Active Substance: DEXTROSE
     Dosage: UNK (AS NEEDED)
     Dates: start: 20200320
  6. HYDROXOCOBALAMIN [Concomitant]
     Active Substance: HYDROXOCOBALAMIN
     Dosage: UNK (AS DIRECTED)
     Route: 030
     Dates: start: 20220208, end: 20220211
  7. NOVORAPID [Concomitant]
     Active Substance: INSULIN ASPART
     Dosage: UNK (USE AS DIRECTED)
     Dates: start: 20200703
  8. ALBUTEROL [Concomitant]
     Active Substance: ALBUTEROL
     Dosage: QID (1-2 PUFFS UP TO FOUR TIMES WHEN RE...)
     Route: 055
     Dates: start: 20220112
  9. TOUJEO [Concomitant]
     Active Substance: INSULIN GLARGINE
     Dosage: UNK (USE AS DIRECTED)
     Dates: start: 20200703

REACTIONS (3)
  - Chest discomfort [Unknown]
  - Malaise [Unknown]
  - Decreased appetite [Unknown]

NARRATIVE: CASE EVENT DATE: 20220307
